FAERS Safety Report 4693771-0 (Version None)
Quarter: 2005Q2

REPORT INFORMATION
  Report Type: 
  Country: None (occurrence: None)
  Receive Date: 20050616
  Receipt Date: 20050613
  Transmission Date: 20051028
  Serious: Yes (Other)
  Sender: FDA-Public Use
  Company Number: 200510874GDS

PATIENT
  Age: 37 Year
  Sex: Female
  Weight: 55 kg

DRUGS (1)
  1. AVELOX [Suspect]
     Dosage: 400 MG, TOTAL DAILY, ORAL
     Route: 048

REACTIONS (4)
  - BLINDNESS TRANSIENT [None]
  - BLOOD PRESSURE DECREASED [None]
  - NERVOUS SYSTEM DISORDER [None]
  - VISUAL DISTURBANCE [None]
